FAERS Safety Report 6119414-7 (Version None)
Quarter: 2009Q1

REPORT INFORMATION
  Report Type: 
  Country: None (occurrence: None)
  Receive Date: 20090316
  Receipt Date: 20090306
  Transmission Date: 20090719
  Serious: Yes (Hospitalization)
  Sender: FDA-Public Use
  Company Number: A0772836A

PATIENT
  Age: 58 Year
  Sex: Female

DRUGS (8)
  1. AVANDIA [Suspect]
     Indication: DIABETES MELLITUS
     Dosage: 8MG PER DAY
     Route: 048
     Dates: start: 20000101, end: 20050301
  2. GLUCOPHAGE [Concomitant]
  3. INSULIN [Concomitant]
  4. AMARYL [Concomitant]
  5. PRAVACHOL [Concomitant]
  6. PRILOSEC [Concomitant]
  7. MAXZIDE [Concomitant]
  8. LOTREL [Concomitant]

REACTIONS (2)
  - CARDIAC FAILURE CONGESTIVE [None]
  - PANIC ATTACK [None]
